FAERS Safety Report 14565174 (Version 1)
Quarter: 2018Q1

REPORT INFORMATION
  Report Type: Spontaneous
  Country: IT (occurrence: IT)
  Receive Date: 20180223
  Receipt Date: 20180223
  Transmission Date: 20180509
  Serious: Yes (Other)
  Sender: FDA-Public Use
  Company Number: IT-AUROBINDO-AUR-APL-2018-009056

PATIENT
  Age: 63 Year
  Sex: Female

DRUGS (1)
  1. CEFIXIME. [Suspect]
     Active Substance: CEFIXIME
     Indication: PRODUCT USED FOR UNKNOWN INDICATION
     Dosage: 400 MG, DAILY
     Route: 048

REACTIONS (2)
  - Hypersensitivity [Unknown]
  - Swelling [Unknown]

NARRATIVE: CASE EVENT DATE: 20161230
